FAERS Safety Report 21757487 (Version 2)
Quarter: 2022Q4

REPORT INFORMATION
  Report Type: Spontaneous
  Country: US (occurrence: US)
  Receive Date: 20221221
  Receipt Date: 20221228
  Transmission Date: 20230113
  Serious: No
  Sender: FDA-Public Use
  Company Number: US-SA-SAC20221219001179

PATIENT
  Sex: Female

DRUGS (2)
  1. DUPIXENT [Suspect]
     Active Substance: DUPILUMAB
     Indication: Dermatitis atopic
     Dosage: DOSE: 300MG FREQUENCY: INJECT 2 PENS UNDER THE SKIN IN THE ABDOMEN OR THIGH ON DAY 1, THEN INJECT 1.
     Route: 058
     Dates: start: 202212
  2. DUPIXENT [Suspect]
     Active Substance: DUPILUMAB
     Dosage: INJECT 1. PEN ON DAY 15, THEN 1 PEN EVERY OTHER WEEK THEREAFTER
     Route: 058

REACTIONS (1)
  - Drug ineffective [Unknown]
